FAERS Safety Report 12285188 (Version 1)
Quarter: 2016Q2

REPORT INFORMATION
  Report Type: Spontaneous
  Country: US (occurrence: None)
  Receive Date: 20160419
  Receipt Date: 20160419
  Transmission Date: 20160815
  Serious: No
  Sender: FDA-Public Use
  Company Number: None

PATIENT
  Age: 19 Year
  Sex: Female
  Weight: 70.31 kg

DRUGS (2)
  1. MIRENA [Suspect]
     Active Substance: LEVONORGESTREL
     Dates: start: 20150220
  2. MULTIVITAMINS [Concomitant]
     Active Substance: VITAMINS

REACTIONS (6)
  - Uterine spasm [None]
  - Nipple pain [None]
  - Weight increased [None]
  - Weight loss poor [None]
  - Breast pain [None]
  - Breast enlargement [None]

NARRATIVE: CASE EVENT DATE: 20160418
